FAERS Safety Report 10095247 (Version 1)
Quarter: 2014Q2

REPORT INFORMATION
  Report Type: Spontaneous
  Country: US (occurrence: US)
  Receive Date: 20140422
  Receipt Date: 20140422
  Transmission Date: 20141212
  Serious: Yes (Other)
  Sender: FDA-Public Use
  Company Number: US-ASTRAZENECA-2014SE26210

PATIENT
  Age: 1042 Month
  Sex: Female
  Weight: 40.8 kg

DRUGS (5)
  1. SYMBICORT [Suspect]
     Indication: CHRONIC OBSTRUCTIVE PULMONARY DISEASE
     Dosage: 160 4.5MCG DAILY
     Route: 055
     Dates: start: 201312
  2. SYMBICORT [Suspect]
     Indication: ASTHMA
     Dosage: 160 4.5MCG DAILY
     Route: 055
     Dates: start: 201312
  3. SPIRIVA [Concomitant]
     Indication: CHRONIC OBSTRUCTIVE PULMONARY DISEASE
  4. SPIRIVA [Concomitant]
     Indication: ASTHMA
  5. OTC ALLERGY PILL [Concomitant]

REACTIONS (3)
  - Oropharyngeal candidiasis [Not Recovered/Not Resolved]
  - Pharyngeal disorder [Unknown]
  - Off label use [Unknown]
